FAERS Safety Report 8702319 (Version 2)
Quarter: 2013Q4

REPORT INFORMATION
  Report Type: Spontaneous
  Country: US (occurrence: US)
  Receive Date: 20120803
  Receipt Date: 20131101
  Transmission Date: 20140711
  Serious: No
  Sender: FDA-Public Use
  Company Number: US-009507513-1207USA009756

PATIENT
  Sex: 0

DRUGS (24)
  1. ZOCOR [Suspect]
     Route: 048
  2. LIPITOR [Suspect]
  3. LYRICA [Suspect]
     Dosage: 75 MG, BID
     Route: 048
  4. PAXIL [Suspect]
  5. CRESTOR [Suspect]
  6. TRICOR (FENOFIBRATE) [Suspect]
  7. PRAVACHOL [Suspect]
  8. JANUVIA [Concomitant]
     Dosage: 100 MG, MORNING
     Route: 048
  9. LANTUS [Concomitant]
     Dosage: 10 UNIT, HS
  10. GLYBURIDE [Concomitant]
     Dosage: 2.5 MG, 2 MORNING, 2 NIGHT
  11. METFORMIN [Concomitant]
     Dosage: 500 MG, 2 MORNING, 2 NIGHT
  12. MINOCYCLINE HYDROCHLORIDE [Concomitant]
     Dosage: 100 MG, 1 BEDTIME
  13. CALCIUM (UNSPECIFIED) [Concomitant]
     Dosage: 600 MG, 1 NIGHT
  14. OMEGA-3 [Concomitant]
     Dosage: 300 MG, 1 MORNING
  15. VITAMINS (UNSPECIFIED) [Concomitant]
     Dosage: 1 MORNING
  16. ASCORBIC ACID [Concomitant]
     Dosage: 500 MG, 1 NIGHT
  17. ZETIA [Concomitant]
     Dosage: 10 MG, 1 MORNING
     Route: 048
  18. LOSARTAN POTASSIUM [Concomitant]
     Dosage: 50 MG, 1 MORNING
  19. CYANOCOBALAMIN [Concomitant]
     Dosage: 50 MG, 1 MORNING
  20. CYMBALTA [Concomitant]
     Dosage: 60 MG, 1 MORNING-1NIGHT
  21. SOTALOL HYDROCHLORIDE [Concomitant]
     Dosage: 80 MG, 1 MORNING-1NIGHT
  22. CIPROFLOXACIN [Concomitant]
  23. SAVELLA [Concomitant]
  24. ASPIRIN [Concomitant]
     Dosage: 81 MG, 1 NIGHT

REACTIONS (3)
  - Musculoskeletal stiffness [Unknown]
  - Myalgia [Unknown]
  - Muscular weakness [Unknown]
